FAERS Safety Report 8179913-3 (Version None)
Quarter: 2012Q1

REPORT INFORMATION
  Report Type: 
  Country: None (occurrence: None)
  Receive Date: 20120302
  Receipt Date: 20120229
  Transmission Date: 20120608
  Serious: Yes (Hospitalization, Other)
  Sender: FDA-Public Use
  Company Number: US-PFIZER INC-2011199189

PATIENT
  Sex: Male

DRUGS (1)
  1. CHANTIX [Suspect]
     Indication: SMOKING CESSATION THERAPY
     Dosage: STARTER PACK AND (2) CONTINUING PACK UNK
     Dates: start: 20080215, end: 20080417

REACTIONS (5)
  - SUICIDAL IDEATION [None]
  - SLEEP DISORDER [None]
  - DEPRESSION [None]
  - IRRITABILITY [None]
  - ANXIETY [None]
